FAERS Safety Report 7294842-5 (Version None)
Quarter: 2011Q1

REPORT INFORMATION
  Report Type: 
  Country: None (occurrence: None)
  Receive Date: 20110216
  Receipt Date: 20110203
  Transmission Date: 20110831
  Serious: Yes (Hospitalization, Other)
  Sender: FDA-Public Use
  Company Number: US-ELI_LILLY_AND_COMPANY-US201102001285

PATIENT
  Age: 78 Year
  Sex: Female

DRUGS (19)
  1. TYLENOL /SCH/ [Concomitant]
     Dosage: UNK, AS NEEDED
  2. BISACODYL [Concomitant]
     Dosage: UNK, AS NEEDED
  3. FLEET [Concomitant]
     Dosage: UNK, AS NEEDED
  4. FORTEO [Suspect]
     Indication: OSTEOPOROSIS
     Dosage: 20 UG, DAILY (1/D)
  5. LIPITOR [Concomitant]
  6. COLACE [Concomitant]
  7. DILAUDID [Concomitant]
     Dosage: UNK, AS NEEDED
  8. CALCIUM [Concomitant]
  9. FERROUS SULFATE TAB [Concomitant]
  10. LOVENOX [Concomitant]
  11. AMBIEN [Concomitant]
     Dosage: UNK, AS NEEDED
  12. SYNTHROID [Concomitant]
  13. NORVASC [Concomitant]
  14. MIRALAX [Concomitant]
     Dosage: UNK, AS NEEDED
  15. QVAR 40 [Concomitant]
  16. MILK OF MAGNESIUM [Concomitant]
     Dosage: UNK, AS NEEDED
  17. ASCORBIC ACID [Concomitant]
  18. ZANTAC [Concomitant]
     Dosage: UNK, AS NEEDED
  19. BENADRYL [Concomitant]
     Dosage: UNK, AS NEEDED

REACTIONS (1)
  - KNEE ARTHROPLASTY [None]
